FAERS Safety Report 12273058 (Version 1)
Quarter: 2016Q2

REPORT INFORMATION
  Report Type: Spontaneous
  Country: US (occurrence: US)
  Receive Date: 20160415
  Receipt Date: 20160415
  Transmission Date: 20160815
  Serious: Yes (Other)
  Sender: FDA-Public Use
  Company Number: US-ROCHE-742676

PATIENT
  Sex: Female

DRUGS (2)
  1. PEGASYS [Suspect]
     Active Substance: PEGINTERFERON ALFA-2A
     Indication: HEPATITIS C
     Route: 058
  2. RIBASPHERE [Suspect]
     Active Substance: RIBAVIRIN
     Indication: HEPATITIS C
     Route: 048

REACTIONS (12)
  - Scratch [Not Recovered/Not Resolved]
  - Skin burning sensation [Not Recovered/Not Resolved]
  - Pruritus [Not Recovered/Not Resolved]
  - Rash pruritic [Not Recovered/Not Resolved]
  - Back pain [Not Recovered/Not Resolved]
  - Rash [Unknown]
  - Pain in extremity [Not Recovered/Not Resolved]
  - Rash generalised [Not Recovered/Not Resolved]
  - Asthenia [Not Recovered/Not Resolved]
  - Rash generalised [Unknown]
  - Myalgia [Recovering/Resolving]
  - Pain [Not Recovered/Not Resolved]
